FAERS Safety Report 7540422-3 (Version None)
Quarter: 2011Q2

REPORT INFORMATION
  Report Type: 
  Country: None (occurrence: None)
  Receive Date: 20110610
  Receipt Date: 20110606
  Transmission Date: 20111010
  Serious: Yes (Other)
  Sender: FDA-Public Use
  Company Number: A0930707A

PATIENT
  Sex: Female

DRUGS (1)
  1. ALLI [Suspect]
     Route: 048

REACTIONS (6)
  - JAUNDICE [None]
  - YELLOW SKIN [None]
  - GASTROINTESTINAL DISORDER [None]
  - OCULAR ICTERUS [None]
  - LIVER INJURY [None]
  - FATIGUE [None]
